FAERS Safety Report 8220683-8 (Version None)
Quarter: 2012Q1

REPORT INFORMATION
  Report Type: 
  Country: None (occurrence: None)
  Receive Date: 20120320
  Receipt Date: 20120308
  Transmission Date: 20120608
  Serious: Yes (Other)
  Sender: FDA-Public Use
  Company Number: US-ELI_LILLY_AND_COMPANY-US201203004227

PATIENT
  Sex: Male

DRUGS (9)
  1. PREDNISONE [Concomitant]
  2. FLAGYL [Concomitant]
  3. ACYCLOVIR [Concomitant]
  4. CYMBALTA [Suspect]
     Indication: DEPRESSION
     Dosage: 60 MG, QD
  5. TYLENOL PM [Concomitant]
     Dosage: 2 DF, EACH EVENING
  6. FLUDROCORTISONE ACETATE [Concomitant]
  7. KLONOPIN [Concomitant]
     Dosage: 1 DF, EACH EVENING
  8. CEFTIN [Concomitant]
  9. VALACICLOVIR [Concomitant]

REACTIONS (14)
  - BASAL CELL CARCINOMA [None]
  - ADRENAL INSUFFICIENCY [None]
  - ELECTROCARDIOGRAM QT PROLONGED [None]
  - PAIN IN EXTREMITY [None]
  - HUMAN HERPESVIRUS 6 INFECTION [None]
  - ARTHRALGIA [None]
  - SQUAMOUS CELL CARCINOMA [None]
  - ELECTROCARDIOGRAM ABNORMAL [None]
  - HYPOTENSION [None]
  - RASH [None]
  - RENAL DISORDER [None]
  - SLEEP APNOEA SYNDROME [None]
  - LYME DISEASE [None]
  - MYOCLONUS [None]
